FAERS Safety Report 16482090 (Version 2)
Quarter: 2020Q2

REPORT INFORMATION
  Report Type: Spontaneous
  Country: US (occurrence: US)
  Receive Date: 20190627
  Receipt Date: 20200424
  Transmission Date: 20200713
  Serious: No
  Sender: FDA-Public Use
  Company Number: US-SA-2019SA172239

PATIENT
  Age: 28 Year
  Sex: Female

DRUGS (2)
  1. KEVZARA [Suspect]
     Active Substance: SARILUMAB
     Dosage: 200 MG
     Route: 058
     Dates: start: 201901
  2. KEVZARA [Suspect]
     Active Substance: SARILUMAB
     Dosage: 200 MG, END DATE- DEC-2019
     Route: 058

REACTIONS (2)
  - Product dose omission [Unknown]
  - Drug ineffective [Unknown]

NARRATIVE: CASE EVENT DATE: 2019
